FAERS Safety Report 9709434 (Version 1)
Quarter: 2013Q4

REPORT INFORMATION
  Report Type: Spontaneous
  Country: ES (occurrence: ES)
  Receive Date: 20131126
  Receipt Date: 20131126
  Transmission Date: 20140711
  Serious: Yes (Other)
  Sender: FDA-Public Use
  Company Number: ES-ROCHE-1303745

PATIENT
  Age: 70 Year
  Sex: Female

DRUGS (10)
  1. XELODA [Suspect]
     Indication: COLON CANCER
     Route: 048
     Dates: start: 20111228
  2. XELODA [Suspect]
     Route: 048
     Dates: start: 20130722
  3. AVASTIN [Suspect]
     Indication: COLON CANCER
     Dosage: 25 MG/ML
     Route: 042
     Dates: start: 20121119
  4. AVASTIN [Suspect]
     Route: 042
     Dates: start: 20130520
  5. AVASTIN [Suspect]
     Route: 042
     Dates: start: 20130722
  6. OXALIPLATIN [Suspect]
     Indication: COLON CANCER
     Route: 042
     Dates: start: 20111207
  7. OXALIPLATIN [Suspect]
     Route: 042
     Dates: start: 20130520
  8. FOLINIC ACID [Concomitant]
     Route: 065
     Dates: start: 20121119
  9. IRINOTECAN [Concomitant]
     Route: 065
     Dates: start: 20121119
  10. FLUOROURACIL [Concomitant]
     Route: 065
     Dates: start: 20121119

REACTIONS (4)
  - Somnolence [Recovered/Resolved]
  - Dizziness [Recovered/Resolved]
  - Muscular weakness [Recovered/Resolved]
  - Dysarthria [Recovered/Resolved]
